FAERS Safety Report 5422308-3 (Version None)
Quarter: 2007Q3

REPORT INFORMATION
  Report Type: 
  Country: None (occurrence: None)
  Receive Date: 20070820
  Receipt Date: 20070802
  Transmission Date: 20080115
  Serious: No
  Sender: FDA-Public Use
  Company Number: ENC200700118

PATIENT
  Age: 71 Year
  Sex: Male

DRUGS (8)
  1. ARGATROBAN [Suspect]
     Indication: CEREBRAL THROMBOSIS
     Dosage: 60 MG, BID, INTRAVENOUS
     Route: 042
     Dates: start: 20070331, end: 20070410
  2. RADICUT (EDARAVONE) [Suspect]
     Indication: CEREBRAL THROMBOSIS
     Dosage: 30 MG, TID, INTRAVENOUS
     Route: 042
     Dates: start: 20070330, end: 20070412
  3. GRTPA(ALTEPLASE) [Suspect]
     Indication: CEREBRAL THROMBOSIS
     Dosage: 40.8 MG, QD, INTRAVENOUS
     Route: 042
     Dates: start: 20070330, end: 20070330
  4. ISOSORBIDE DINITRATE [Concomitant]
  5. LOW MOLECULAR DEXTRAN (DEXTRAN 40) [Concomitant]
  6. FAMOTIDINE [Concomitant]
  7. ASPIRINA BAYER (ACETYLSALICYLIC ACID) [Concomitant]
  8. LANSOPRAZOLE [Concomitant]

REACTIONS (6)
  - BLOOD FIBRINOGEN INCREASED [None]
  - DEEP VEIN THROMBOSIS [None]
  - HEPATIC FUNCTION ABNORMAL [None]
  - LIVER DISORDER [None]
  - PNEUMONIA ASPIRATION [None]
  - RESTLESSNESS [None]
